FAERS Safety Report 13897230 (Version 1)
Quarter: 2017Q3

REPORT INFORMATION
  Report Type: Spontaneous
  Country: US (occurrence: US)
  Receive Date: 20170823
  Receipt Date: 20170823
  Transmission Date: 20171127
  Serious: No
  Sender: FDA-Public Use
  Company Number: US-GLAXOSMITHKLINE-US2017127903

PATIENT
  Age: 75 Year
  Sex: Male

DRUGS (1)
  1. DICLOFENAC SODIUM GEL [Suspect]
     Active Substance: DICLOFENAC SODIUM
     Indication: RASH
     Dosage: UNK
     Dates: start: 201704

REACTIONS (3)
  - Product use in unapproved indication [Unknown]
  - Drug administered at inappropriate site [Unknown]
  - Drug effective for unapproved indication [Unknown]
